FAERS Safety Report 4492989-X (Version None)
Quarter: 2004Q4

REPORT INFORMATION
  Report Type: 
  Country: None (occurrence: None)
  Receive Date: 20041028
  Receipt Date: 20041014
  Transmission Date: 20050328
  Serious: Yes (Death, Hospitalization)
  Sender: FDA-Public Use
  Company Number: WSDF_00413

PATIENT
  Age: 71 Year
  Sex: Male
  Weight: 72 kg

DRUGS (7)
  1. WINRHO SDF [Suspect]
     Indication: THROMBOCYTOPENIA
     Dosage: 75 MCG/LG ONCE IV
     Route: 042
     Dates: start: 20040607, end: 20040607
  2. WINRHO SDF [Suspect]
     Dates: start: 20040607, end: 20040607
  3. ACYCLOVIR [Concomitant]
  4. BACTRIM [Concomitant]
  5. PREDNISONE [Concomitant]
  6. FUROSEMIDE [Concomitant]
  7. ALDACTONE [Concomitant]

REACTIONS (28)
  - ACUTE RESPIRATORY DISTRESS SYNDROME [None]
  - ALANINE AMINOTRANSFERASE INCREASED [None]
  - ASPARTATE AMINOTRANSFERASE INCREASED [None]
  - BACK PAIN [None]
  - BLOOD ALKALINE PHOSPHATASE INCREASED [None]
  - BLOOD CREATININE INCREASED [None]
  - BLOOD LACTATE DEHYDROGENASE INCREASED [None]
  - BUNDLE BRANCH BLOCK RIGHT [None]
  - CARDIO-RESPIRATORY ARREST [None]
  - CARDIOMEGALY [None]
  - CEREBRAL INFARCTION [None]
  - CHEST WALL PAIN [None]
  - COMA [None]
  - ELECTROMECHANICAL DISSOCIATION [None]
  - EXTRAVASCULAR HAEMOLYSIS [None]
  - HAEMATURIA [None]
  - HAEMOGLOBIN DECREASED [None]
  - HAEMOGLOBIN URINE PRESENT [None]
  - HEADACHE [None]
  - INTRAVASCULAR HAEMOLYSIS [None]
  - PLATELET COUNT DECREASED [None]
  - PULMONARY CONGESTION [None]
  - PULMONARY EMBOLISM [None]
  - PULMONARY HYPERTENSION [None]
  - PULMONARY OEDEMA [None]
  - RESPIRATORY DISTRESS [None]
  - SINUS TACHYCARDIA [None]
  - VENTRICULAR TACHYCARDIA [None]
